FAERS Safety Report 16426487 (Version 1)
Quarter: 2019Q3

REPORT INFORMATION
  Report Type: Spontaneous
  Country: US (occurrence: US)
  Receive Date: 20190612
  Receipt Date: 20190612
  Transmission Date: 20191004
  Serious: Yes (Other)
  Sender: FDA-Public Use
  Company Number: None

PATIENT
  Age: 67 Year
  Sex: Female
  Weight: 69.3 kg

DRUGS (21)
  1. VITAMIN B6 [Concomitant]
     Active Substance: PYRIDOXINE HYDROCHLORIDE
  2. CLONAZEPAM. [Concomitant]
     Active Substance: CLONAZEPAM
  3. CARVEDILOL. [Concomitant]
     Active Substance: CARVEDILOL
  4. IMATINIB. [Suspect]
     Active Substance: IMATINIB MESYLATE
     Route: 048
     Dates: start: 20170508
  5. DILANTIN [Concomitant]
     Active Substance: PHENYTOIN
  6. CITALOPRAM HYDROBROMIDE. [Concomitant]
     Active Substance: CITALOPRAM HYDROBROMIDE
  7. OXYBUTYNIN CHLORIDE ER [Concomitant]
     Active Substance: OXYBUTYNIN CHLORIDE
  8. ESOMPERAZOLE MAGNESIUM [Concomitant]
  9. MUPIROCIN. [Concomitant]
     Active Substance: MUPIROCIN
  10. LINZESS [Concomitant]
     Active Substance: LINACLOTIDE
  11. CLOPIDOGREL [Concomitant]
     Active Substance: CLOPIDOGREL BISULFATE
  12. OXYCODONE AND ACETAMINOPHEN [Concomitant]
     Active Substance: ACETAMINOPHEN\OXYCODONE HYDROCHLORIDE
  13. FOLIC ACID. [Concomitant]
     Active Substance: FOLIC ACID
  14. POTASSIUM CHLORIDE ER [Concomitant]
     Active Substance: POTASSIUM CHLORIDE
  15. CLOTRIMAZOLE AF [Concomitant]
  16. DOC-Q-LAX [Concomitant]
  17. PROAIR HFA [Concomitant]
     Active Substance: ALBUTEROL SULFATE
  18. BETAMETHASONE DIPROPIONATE. [Concomitant]
     Active Substance: BETAMETHASONE DIPROPIONATE
  19. BISACODYL LAXATIVE [Concomitant]
     Active Substance: BISACODYL
  20. FUROSEMIDE. [Concomitant]
     Active Substance: FUROSEMIDE
  21. LEVOFLOXACIN. [Concomitant]
     Active Substance: LEVOFLOXACIN

REACTIONS (1)
  - Abdominal discomfort [None]
